FAERS Safety Report 4943556-2 (Version None)
Quarter: 2006Q1

REPORT INFORMATION
  Report Type: 
  Country: None (occurrence: None)
  Receive Date: 20060314
  Receipt Date: 20051116
  Transmission Date: 20060701
  Serious: Yes (Life-Threatening, Other)
  Sender: FDA-Public Use
  Company Number: GB-BRISTOL-MYERS SQUIBB COMPANY-13182563

PATIENT
  Age: 58 Year
  Sex: Male
  Weight: 66 kg

DRUGS (6)
  1. ABILIFY [Suspect]
     Indication: PSYCHOTIC DISORDER
     Dosage: DOSAGE: 10 MG 2004 -} INCREASED TO 15 MG ON UNKNOWN DATE -} INCREASED TO 20 MG ON 29-OCT-2005
     Route: 048
     Dates: start: 20040101, end: 20051101
  2. OXYBUTYNIN [Concomitant]
     Route: 048
     Dates: start: 20050101
  3. DULOXETINE HCL [Concomitant]
     Indication: DEPRESSION
     Route: 048
     Dates: start: 20051001, end: 20051103
  4. CLOZARIL [Concomitant]
     Indication: PSYCHOTIC DISORDER
     Route: 048
     Dates: start: 20040101, end: 20051001
  5. HYOSCINE HBR HYT [Concomitant]
     Indication: SALIVARY HYPERSECRETION
     Route: 048
     Dates: start: 20050101, end: 20050901
  6. FLUOXETINE HCL [Concomitant]
     Indication: DEPRESSION
     Route: 048
     Dates: start: 20050101, end: 20050801

REACTIONS (3)
  - BLOOD CREATINE PHOSPHOKINASE INCREASED [None]
  - MENTAL IMPAIRMENT [None]
  - WHITE BLOOD CELL COUNT INCREASED [None]
